FAERS Safety Report 6904057-5 (Version None)
Quarter: 2010Q3

REPORT INFORMATION
  Report Type: 
  Country: None (occurrence: None)
  Receive Date: 20100804
  Receipt Date: 20090311
  Transmission Date: 20110219
  Serious: No
  Sender: FDA-Public Use
  Company Number: US-PFIZER INC-2008160375

PATIENT
  Sex: Female
  Weight: 40.8 kg

DRUGS (6)
  1. LYRICA [Suspect]
     Indication: NEUROPATHY PERIPHERAL
     Dosage: 25 MG, 3X/DAY
     Dates: end: 20080101
  2. LYRICA [Suspect]
     Indication: TRIGEMINAL NEURALGIA
  3. DIGOXIN [Concomitant]
     Dosage: UNK
  4. PROGESTERONE [Concomitant]
     Dosage: UNK
  5. ESTRADIOL [Concomitant]
     Dosage: UNK
  6. CYCLOBENZAPRINE [Concomitant]
     Dosage: UNK

REACTIONS (3)
  - BLISTER [None]
  - OEDEMA PERIPHERAL [None]
  - PAIN IN EXTREMITY [None]
